FAERS Safety Report 7620561-9 (Version None)
Quarter: 2011Q3

REPORT INFORMATION
  Report Type: 
  Country: None (occurrence: None)
  Receive Date: 20110719
  Receipt Date: 20110707
  Transmission Date: 20111222
  Serious: Yes (Other)
  Sender: FDA-Public Use
  Company Number: US-ROCHE-757227

PATIENT
  Sex: Male
  Weight: 63.5 kg

DRUGS (3)
  1. ACCUTANE [Suspect]
     Indication: ACNE
     Route: 065
     Dates: start: 19850101, end: 19860101
  2. ACCUTANE [Suspect]
     Route: 065
     Dates: start: 19890101, end: 19900101
  3. ACCUTANE [Suspect]
     Route: 065
     Dates: start: 19870101, end: 19870101

REACTIONS (8)
  - INFLAMMATORY BOWEL DISEASE [None]
  - RECTAL HAEMORRHAGE [None]
  - CROHN'S DISEASE [None]
  - HAEMORRHOIDS [None]
  - ABDOMINAL PAIN [None]
  - DEPRESSION [None]
  - ANXIETY [None]
  - COLITIS ULCERATIVE [None]
